FAERS Safety Report 7211115-7 (Version None)
Quarter: 2010Q4

REPORT INFORMATION
  Report Type: 
  Country: None (occurrence: None)
  Receive Date: 20101223
  Receipt Date: 20101213
  Transmission Date: 20110411
  Serious: Yes (Hospitalization, Disabling, Other)
  Sender: FDA-Public Use
  Company Number: 2010P1003262

PATIENT
  Age: 39 Year
  Sex: Female
  Weight: 117.9352 kg

DRUGS (9)
  1. COLCHICINE [Suspect]
     Indication: GOUT
     Dosage: 1.2 MG; QD; PO
     Route: 048
     Dates: start: 20070101
  2. COLCHICINE [Suspect]
     Indication: PROPHYLAXIS
     Dosage: 1.2 MG; QD; PO
     Route: 048
     Dates: start: 20070101
  3. ALLOPURINOL [Concomitant]
  4. TRAZODONE [Concomitant]
  5. ZOLOFT [Concomitant]
  6. GABAPENTIN [Concomitant]
  7. ZOLPIDEM [Concomitant]
  8. CATAFLAM [Concomitant]
  9. FAMOTIDINE [Concomitant]

REACTIONS (13)
  - ASTHMA [None]
  - BACK PAIN [None]
  - BLOOD COUNT ABNORMAL [None]
  - BLOOD PRESSURE INCREASED [None]
  - DIARRHOEA [None]
  - FAECES DISCOLOURED [None]
  - FATIGUE [None]
  - GAIT DISTURBANCE [None]
  - HEADACHE [None]
  - RENAL CYST [None]
  - SOMNOLENCE [None]
  - TINNITUS [None]
  - WEIGHT INCREASED [None]
